FAERS Safety Report 8569590-1 (Version None)
Quarter: 2012Q3

REPORT INFORMATION
  Report Type: 
  Country: None (occurrence: None)
  Receive Date: 20120803
  Receipt Date: 20120411
  Transmission Date: 20120928
  Serious: No
  Sender: FDA-Public Use
  Company Number: US-ABBOTT-12P-163-0924712-00

PATIENT
  Sex: Male
  Weight: 118.04 kg

DRUGS (6)
  1. STEROID [Concomitant]
     Indication: PRODUCT USED FOR UNKNOWN INDICATION
  2. JENUVIA [Concomitant]
     Indication: PRODUCT USED FOR UNKNOWN INDICATION
  3. LISINOPRIL [Concomitant]
     Indication: PRODUCT USED FOR UNKNOWN INDICATION
  4. ADVICOR [Concomitant]
     Indication: PRODUCT USED FOR UNKNOWN INDICATION
  5. GLYBURIDE [Concomitant]
     Indication: PRODUCT USED FOR UNKNOWN INDICATION
  6. NIASPAN [Suspect]
     Indication: LOW DENSITY LIPOPROTEIN INCREASED
     Dosage: 2 TABS AT BEDTIME

REACTIONS (2)
  - RASH PRURITIC [None]
  - FLUSHING [None]
